FAERS Safety Report 16932756 (Version 1)
Quarter: 2019Q4

REPORT INFORMATION
  Report Type: Spontaneous
  Country: US (occurrence: US)
  Receive Date: 20191018
  Receipt Date: 20191018
  Transmission Date: 20200122
  Serious: Yes (Other)
  Sender: FDA-Public Use
  Company Number: US-LUPIN PHARMACEUTICALS INC.-2019-06611

PATIENT
  Age: 43 Year
  Sex: Female
  Weight: 95.24 kg

DRUGS (5)
  1. PERCOCET [Concomitant]
     Active Substance: ACETAMINOPHEN\OXYCODONE HYDROCHLORIDE
     Indication: PAIN
     Dosage: UNK
     Route: 065
  2. SPIRONOLACTONE. [Concomitant]
     Active Substance: SPIRONOLACTONE
     Indication: BLOOD PRESSURE ABNORMAL
     Dosage: UNK
     Route: 065
  3. OXTELLAR XR [Concomitant]
     Active Substance: OXCARBAZEPINE
     Indication: SEIZURE
     Dosage: UNK
     Route: 065
  4. TOPAMAX [Concomitant]
     Active Substance: TOPIRAMATE
     Indication: SEIZURE
     Dosage: UNK
     Route: 065
  5. BLISOVI FE 1/20 [Suspect]
     Active Substance: ETHINYL ESTRADIOL\NORETHINDRONE ACETATE
     Indication: ORAL CONTRACEPTION
     Dosage: UNK, QD
     Route: 048
     Dates: start: 20190929, end: 20191006

REACTIONS (11)
  - Back pain [Recovering/Resolving]
  - Gait disturbance [Not Recovered/Not Resolved]
  - Poor quality sleep [Unknown]
  - Asthenia [Recovering/Resolving]
  - Pelvic pain [Not Recovered/Not Resolved]
  - Palpitations [Recovered/Resolved]
  - Chest discomfort [Not Recovered/Not Resolved]
  - Thunderclap headache [Unknown]
  - Dyspnoea [Not Recovered/Not Resolved]
  - Thirst [Unknown]
  - Feeling abnormal [Recovering/Resolving]

NARRATIVE: CASE EVENT DATE: 20190929
